FAERS Safety Report 25159624 (Version 1)
Quarter: 2025Q2

REPORT INFORMATION
  Report Type: Spontaneous
  Country: DE (occurrence: DE)
  Receive Date: 20250404
  Receipt Date: 20250404
  Transmission Date: 20250717
  Serious: Yes (Hospitalization)
  Sender: MACLEODS
  Company Number: DE-MACLEODS PHARMA-2013-34771-051

PATIENT

DRUGS (1)
  1. SILDENAFIL [Suspect]
     Active Substance: SILDENAFIL
     Indication: Sexual activity increased
     Route: 065

REACTIONS (5)
  - Vertebrobasilar artery dissection [Recovered/Resolved]
  - Hemiparaesthesia [Recovered/Resolved]
  - Neck pain [Recovered/Resolved]
  - Drug abuse [Unknown]
  - Ataxia [Recovered/Resolved]
